FAERS Safety Report 7904125-5 (Version None)
Quarter: 2011Q4

REPORT INFORMATION
  Report Type: 
  Country: None (occurrence: None)
  Receive Date: 20111109
  Receipt Date: 20111106
  Transmission Date: 20120403
  Serious: Yes (Death, Hospitalization, Other)
  Sender: FDA-Public Use
  Company Number: BR-ABBOTT-11P-020-0851670-00

PATIENT
  Sex: Male
  Weight: 89 kg

DRUGS (24)
  1. OMEPRAZOLE [Concomitant]
     Dosage: 20 MG DAILY
  2. CALCIUM [Concomitant]
     Indication: PRODUCT USED FOR UNKNOWN INDICATION
  3. UNSPECIFIED MEDICINE [Concomitant]
     Indication: GASTRIC DISORDER
  4. OMEPRAZOLE [Concomitant]
     Indication: PRODUCT USED FOR UNKNOWN INDICATION
  5. CALCIUM CITRATE [Concomitant]
     Indication: PRODUCT USED FOR UNKNOWN INDICATION
     Dosage: 500MG DAILY
  6. HYDROCHLOROTHIAZIDE [Concomitant]
     Indication: PRODUCT USED FOR UNKNOWN INDICATION
     Dosage: 25MG DAILY
  7. HUMIRA [Suspect]
     Indication: RHEUMATOID ARTHRITIS
     Route: 058
     Dates: start: 20110523, end: 20110807
  8. METHOTREXATE [Suspect]
     Indication: PRODUCT USED FOR UNKNOWN INDICATION
  9. UNSPECIFIED MEDICINE [Concomitant]
     Indication: PAIN
  10. HYDROXYCHLOROQUINE SULFATE [Concomitant]
     Indication: PRODUCT USED FOR UNKNOWN INDICATION
  11. SODIUM CITRATE [Concomitant]
     Indication: PRODUCT USED FOR UNKNOWN INDICATION
  12. SODIUM RISEDRONATE [Concomitant]
     Indication: PRODUCT USED FOR UNKNOWN INDICATION
  13. METHOTREXATE [Suspect]
  14. PREDNISOLONE [Concomitant]
     Indication: PRODUCT USED FOR UNKNOWN INDICATION
  15. HYDROXYCHLOROQUINE SULFATE [Concomitant]
     Dosage: 200MG DAILY
  16. ENALAPRIL MALEATE [Concomitant]
     Indication: PRODUCT USED FOR UNKNOWN INDICATION
     Dosage: 20MG DAILY
  17. ALENDRONATE SODIUM [Concomitant]
     Indication: PRODUCT USED FOR UNKNOWN INDICATION
     Dosage: 70MG WEEKLY
  18. METHOTREXATE [Suspect]
     Dates: start: 20110530
  19. VITAMIN D [Concomitant]
     Indication: PRODUCT USED FOR UNKNOWN INDICATION
  20. UNSPECIFIED MEDICINE [Concomitant]
     Indication: PROPHYLAXIS
  21. PREDNISONE [Concomitant]
     Indication: PRODUCT USED FOR UNKNOWN INDICATION
  22. SULFASALAZINE [Concomitant]
     Indication: PRODUCT USED FOR UNKNOWN INDICATION
     Dates: end: 20110530
  23. DIPYRONE TAB [Concomitant]
     Indication: PRODUCT USED FOR UNKNOWN INDICATION
  24. TENOXICAM [Concomitant]
     Indication: RHEUMATOID ARTHRITIS
     Dosage: 20MG DAILY

REACTIONS (17)
  - PRODUCTIVE COUGH [None]
  - DYSSTASIA [None]
  - DYSPNOEA [None]
  - RENAL FAILURE ACUTE [None]
  - CONDITION AGGRAVATED [None]
  - FATIGUE [None]
  - FEELING ABNORMAL [None]
  - RESPIRATORY FAILURE [None]
  - PYREXIA [None]
  - ACUTE RESPIRATORY DISTRESS SYNDROME [None]
  - RHEUMATOID ARTHRITIS [None]
  - NASOPHARYNGITIS [None]
  - PNEUMONIA BACTERIAL [None]
  - SEPTIC SHOCK [None]
  - IMMUNODEFICIENCY [None]
  - HYPERTENSION [None]
  - PNEUMOCYSTIS JIROVECI PNEUMONIA [None]
